FAERS Safety Report 7960658-7 (Version None)
Quarter: 2011Q4

REPORT INFORMATION
  Report Type: 
  Country: None (occurrence: None)
  Receive Date: 20111206
  Receipt Date: 20111123
  Transmission Date: 20120403
  Serious: Yes (Life-Threatening, Hospitalization)
  Sender: FDA-Public Use
  Company Number: TR-MYLANLABS-2011S1024405

PATIENT
  Age: 24 Year
  Sex: Female

DRUGS (1)
  1. AMITRIPTYLINE HCL [Suspect]
     Indication: INTENTIONAL OVERDOSE
     Dosage: FAMILY ESTIMATED SHE HAD TAKEN 20MG/KG.
     Route: 048

REACTIONS (5)
  - LEUKOCYTOSIS [None]
  - COMA [None]
  - SUICIDE ATTEMPT [None]
  - SINUS TACHYCARDIA [None]
  - INTENTIONAL OVERDOSE [None]
